FAERS Safety Report 19956042 (Version 3)
Quarter: 2022Q1

REPORT INFORMATION
  Report Type: Spontaneous
  Country: JP (occurrence: JP)
  Receive Date: 20211014
  Receipt Date: 20220118
  Transmission Date: 20220424
  Serious: Yes (Life-Threatening, Hospitalization)
  Sender: FDA-Public Use
  Company Number: JP-ORGANON-O2108JPN001348

PATIENT
  Age: 75 Year
  Sex: Female

DRUGS (10)
  1. BONALON [Suspect]
     Active Substance: ALENDRONATE SODIUM
     Indication: Osteoporosis
     Dosage: 35 MILLIGRAM PER WEEK
     Route: 048
     Dates: start: 2006, end: 202008
  2. RHEUMATREX [Suspect]
     Active Substance: METHOTREXATE SODIUM
     Indication: Rheumatoid arthritis
     Dosage: 2 MILLIGRAM
     Route: 048
     Dates: start: 2000
  3. PREDNISOLONE [Concomitant]
     Active Substance: PREDNISOLONE
     Indication: Rheumatoid arthritis
     Dosage: 7.5 MILLIGRAM/DAY
     Route: 048
     Dates: start: 2005
  4. FOLIC ACID [Concomitant]
     Active Substance: FOLIC ACID
     Indication: Rheumatoid arthritis
     Dosage: 10 MILLIGRAM/DAY
     Route: 048
  5. RABEPRAZOLE SODIUM [Concomitant]
     Active Substance: RABEPRAZOLE SODIUM
     Indication: Rheumatoid arthritis
     Dosage: 10 MILLIGRAM/DAY
     Route: 048
  6. BILASTINE [Concomitant]
     Active Substance: BILASTINE
     Indication: Rheumatoid arthritis
     Dosage: 20 MILLIGRAM/DAY
     Route: 048
  7. MIZORIBINE [Concomitant]
     Active Substance: MIZORIBINE
     Indication: Rheumatoid arthritis
     Dosage: 150 MILLIGRAM/DAY
     Route: 048
  8. MIROGABALIN BESYLATE [Concomitant]
     Active Substance: MIROGABALIN BESYLATE
     Indication: Rheumatoid arthritis
     Dosage: 5 MILLIGRAM/DAY
     Route: 048
  9. POLAPREZINC [Concomitant]
     Active Substance: POLAPREZINC
     Indication: Rheumatoid arthritis
     Dosage: 25 MILLIGRAM/DAY
     Route: 048
  10. LOXOPROFEN SODIUM [Concomitant]
     Active Substance: LOXOPROFEN SODIUM
     Indication: Rheumatoid arthritis
     Dosage: 60 MILLIGRAM/DAY
     Route: 048

REACTIONS (3)
  - Osteomyelitis [Recovered/Resolved]
  - Osteonecrosis of jaw [Not Recovered/Not Resolved]
  - Abscess neck [Recovering/Resolving]

NARRATIVE: CASE EVENT DATE: 20200801
